FAERS Safety Report 24363274 (Version 2)
Quarter: 2024Q4

REPORT INFORMATION
  Report Type: Report from Study
  Country: US (occurrence: US)
  Receive Date: 20240925
  Receipt Date: 20241007
  Transmission Date: 20250114
  Serious: Yes (Other)
  Sender: OTSUKA
  Company Number: US-OTSUKA-2024_026314

PATIENT
  Age: 36 Year
  Sex: Female
  Weight: 50.79 kg

DRUGS (3)
  1. ARIPIPRAZOLE [Suspect]
     Active Substance: ARIPIPRAZOLE
     Indication: Psychotic disorder
     Dosage: 400 MG, QM
     Route: 065
     Dates: start: 20240221
  2. LISDEXAMFETAMINE DIMESYLATE [Suspect]
     Active Substance: LISDEXAMFETAMINE DIMESYLATE
     Indication: Attention deficit hyperactivity disorder
     Dosage: UNK
     Route: 065
     Dates: start: 20240221
  3. BUPRENORPHINE\NALOXONE [Suspect]
     Active Substance: BUPRENORPHINE\NALOXONE
     Indication: Substance use disorder
     Dosage: UNK
     Route: 065
     Dates: start: 20240221

REACTIONS (6)
  - Foetal death [Unknown]
  - Haemorrhage in pregnancy [Unknown]
  - Subchorionic haematoma [Unknown]
  - Amniorrhoea [Unknown]
  - Maternal exposure during pregnancy [Unknown]
  - Product use in unapproved indication [Unknown]

NARRATIVE: CASE EVENT DATE: 20240221
